FAERS Safety Report 4665102-3 (Version None)
Quarter: 2005Q2

REPORT INFORMATION
  Report Type: 
  Country: None (occurrence: None)
  Receive Date: 20050517
  Receipt Date: 20050504
  Transmission Date: 20051028
  Serious: Yes (Other)
  Sender: FDA-Public Use
  Company Number: DE_050515845

PATIENT
  Age: 55 Year
  Sex: Female

DRUGS (5)
  1. FORTEO [Suspect]
     Indication: OSTEOPOROSIS
     Dates: start: 20040821, end: 20050405
  2. ZYRTEC [Concomitant]
  3. CALCIUM GLUCONATE [Concomitant]
  4. MAGNESIUM [Concomitant]
  5. CELEBREX [Concomitant]

REACTIONS (3)
  - GRANULOMA [None]
  - PANNICULITIS [None]
  - SYSTEMIC LUPUS ERYTHEMATOSUS [None]
